FAERS Safety Report 5833458-1 (Version None)
Quarter: 2008Q3

REPORT INFORMATION
  Report Type: 
  Country: None (occurrence: None)
  Receive Date: 20080731
  Receipt Date: 20080718
  Transmission Date: 20090109
  Serious: Yes (Other)
  Sender: FDA-Public Use
  Company Number: FABR-1000343

PATIENT
  Age: 41 Year
  Sex: Male

DRUGS (12)
  1. FABRAZYME [Suspect]
     Indication: FABRY'S DISEASE
     Dosage: 65 MG, Q2W; 65 MG, Q2W, INTRAVENOUS
     Route: 042
     Dates: start: 20030701, end: 20050101
  2. FABRAZYME [Suspect]
     Indication: FABRY'S DISEASE
     Dosage: 65 MG, Q2W; 65 MG, Q2W, INTRAVENOUS
     Route: 042
     Dates: start: 20071001
  3. CARBAMAZEPINE [Concomitant]
  4. ASPIRIN [Concomitant]
  5. VERAPAMIL [Concomitant]
  6. LISINOPRIL [Concomitant]
  7. LONOX (ATROPINE SULFATE, DIPHENOXYLATE HYDROCHLORIDE) [Concomitant]
  8. PREDNISOLONE ACETATE [Concomitant]
  9. BENADRYL [Concomitant]
  10. IBUPROFEN [Concomitant]
  11. ADVIL [Concomitant]
  12. ONDANSETRON HCL [Concomitant]

REACTIONS (9)
  - AUTOIMMUNE MYOCARDITIS [None]
  - BLOOD THYROID STIMULATING HORMONE INCREASED [None]
  - CONVULSION [None]
  - DIARRHOEA [None]
  - DYSPHAGIA [None]
  - HYPERTHYROIDISM [None]
  - HYPOTHYROIDISM [None]
  - NECK PAIN [None]
  - SENSATION OF FOREIGN BODY [None]
